FAERS Safety Report 13338241 (Version 1)
Quarter: 2017Q1

REPORT INFORMATION
  Report Type: Spontaneous
  Country: US (occurrence: US)
  Receive Date: 20170315
  Receipt Date: 20170315
  Transmission Date: 20170428
  Serious: No
  Sender: FDA-Public Use
  Company Number: US-GLAXOSMITHKLINE-US2017035266

PATIENT
  Age: 58 Year
  Sex: Female

DRUGS (4)
  1. COREG CR [Suspect]
     Active Substance: CARVEDILOL PHOSPHATE
     Dosage: 20 MG, QD
     Route: 048
     Dates: start: 201701
  2. COREG CR [Suspect]
     Active Substance: CARVEDILOL PHOSPHATE
     Dosage: 10 MG, UNK
     Route: 048
  3. COREG CR [Suspect]
     Active Substance: CARVEDILOL PHOSPHATE
     Indication: HYPERTENSION
     Dosage: 10 MG, QD
     Route: 048
     Dates: start: 2012
  4. LOSARTAN. [Concomitant]
     Active Substance: LOSARTAN

REACTIONS (3)
  - Therapeutic response decreased [Recovered/Resolved]
  - Blood pressure increased [Recovered/Resolved]
  - Blood pressure decreased [Recovered/Resolved]

NARRATIVE: CASE EVENT DATE: 201701
